FAERS Safety Report 8576385-1 (Version None)
Quarter: 2012Q3

REPORT INFORMATION
  Report Type: 
  Country: None (occurrence: None)
  Receive Date: 20120807
  Receipt Date: 20120801
  Transmission Date: 20120928
  Serious: Yes (Other)
  Sender: FDA-Public Use
  Company Number: CA-ROCHE-804220

PATIENT
  Sex: Female
  Weight: 76.272 kg

DRUGS (6)
  1. OXYCONTIN [Concomitant]
  2. RISPERIDONE [Concomitant]
  3. PROZAC [Concomitant]
  4. ACTEMRA [Suspect]
     Indication: RHEUMATOID ARTHRITIS
     Route: 042
     Dates: start: 20110725, end: 20111017
  5. OXYCET [Concomitant]
  6. PREDNISONE [Concomitant]

REACTIONS (3)
  - RHEUMATOID ARTHRITIS [None]
  - EPILEPSY [None]
  - CYST [None]
